FAERS Safety Report 4457830-X (Version None)
Quarter: 2004Q3

REPORT INFORMATION
  Report Type: 
  Country: None (occurrence: None)
  Receive Date: 20040924
  Receipt Date: 20040920
  Transmission Date: 20050211
  Serious: Yes (Life-Threatening, Disabling)
  Sender: FDA-Public Use
  Company Number: US-MERCK-0409USA01616

PATIENT
  Age: 40 Year
  Sex: Female

DRUGS (4)
  1. VICODIN [Concomitant]
     Route: 065
  2. LOTENSIN [Concomitant]
     Route: 065
  3. NEURONTIN [Concomitant]
     Route: 065
  4. ZOCOR [Suspect]
     Indication: BLOOD CHOLESTEROL INCREASED
     Route: 048
     Dates: start: 19970101, end: 20000101

REACTIONS (2)
  - HEPATIC PAIN [None]
  - HEPATOCELLULAR DAMAGE [None]
